FAERS Safety Report 5209842-6 (Version None)
Quarter: 2006Q4

REPORT INFORMATION
  Report Type: 
  Country: None (occurrence: None)
  Receive Date: 20061128
  Receipt Date: 20060925
  Transmission Date: 20070319
  Serious: No
  Sender: FDA-Public Use
  Company Number: S06-USA-03861-01

PATIENT
  Sex: Male
  Weight: 95.2554 kg

DRUGS (7)
  1. CAMPRAL [Suspect]
     Indication: ALCOHOLISM
     Dosage: 666 MG TID PO
     Route: 048
     Dates: start: 20060913, end: 20060915
  2. CLONIDINE [Concomitant]
  3. SEROQUEL [Concomitant]
  4. PRILOSEC [Concomitant]
  5. GLYBURIDE [Concomitant]
  6. LIBRIUM [Concomitant]
  7. NALTREXONE [Concomitant]

REACTIONS (1)
  - ARTHRALGIA [None]
